FAERS Safety Report 7062639-7 (Version None)
Quarter: 2010Q4

REPORT INFORMATION
  Report Type: 
  Country: None (occurrence: None)
  Receive Date: 20101026
  Receipt Date: 20091201
  Transmission Date: 20110411
  Serious: No
  Sender: FDA-Public Use
  Company Number: US-PFIZER INC-2009287178

PATIENT
  Sex: Female
  Weight: 79.4 kg

DRUGS (5)
  1. LIPITOR [Suspect]
     Indication: BLOOD CHOLESTEROL INCREASED
     Dosage: 20 MG, 1X/DAY
  2. SYNTHROID [Concomitant]
     Dosage: 0.1 MG, UNK
  3. BENICAR [Concomitant]
     Dosage: 40/25 MG
  4. ZYRTEC [Concomitant]
     Indication: HYPERSENSITIVITY
     Dosage: FREQUENCY: AS NEEDED,
  5. ACETAMINOPHEN [Concomitant]
     Indication: MUSCULOSKELETAL PAIN
     Dosage: FREQUENCY: AS NEEDED,

REACTIONS (2)
  - ALOPECIA [None]
  - MUSCULOSKELETAL PAIN [None]
